FAERS Safety Report 8347338-3 (Version None)
Quarter: 2012Q2

REPORT INFORMATION
  Report Type: 
  Country: None (occurrence: None)
  Receive Date: 20120507
  Receipt Date: 20120422
  Transmission Date: 20120825
  Serious: Yes (Other)
  Sender: FDA-Public Use
  Company Number: US-1191378

PATIENT
  Age: 63 Year
  Sex: Male
  Weight: 70.3075 kg

DRUGS (8)
  1. ALCAINE [Suspect]
     Indication: INTRAOCULAR LENS IMPLANT
     Dosage: (OPHTHALMIC)
     Route: 047
     Dates: start: 20120321, end: 20120321
  2. EPINEPHRINE [Concomitant]
  3. VANCOMYCIN [Concomitant]
  4. PHENYLEPHRINE HCL [Concomitant]
  5. BSS [Suspect]
     Indication: INTRAOCULAR LENS IMPLANT
     Dosage: (INTRAOCULAR)
     Route: 031
     Dates: start: 20120321, end: 20120321
  6. OCUFEN [Concomitant]
  7. CYCLOGYL [Suspect]
     Indication: INTRAOCULAR LENS IMPLANT
     Dosage: (OPHTHALMIC)
     Route: 047
     Dates: start: 20120321, end: 20120321
  8. BETADINE [Suspect]
     Indication: INTRAOCULAR LENS IMPLANT
     Dosage: (OPHTHALMIC)
     Route: 047
     Dates: start: 20120321, end: 20120321

REACTIONS (2)
  - TOXIC ANTERIOR SEGMENT SYNDROME [None]
  - MEDICATION ERROR [None]
